FAERS Safety Report 24277338 (Version 2)
Quarter: 2024Q3

REPORT INFORMATION
  Report Type: Report from Study
  Country: JP (occurrence: JP)
  Receive Date: 20240903
  Receipt Date: 20240923
  Transmission Date: 20241016
  Serious: Yes (Other)
  Sender: RECORDATI
  Company Number: JP-RECORDATI RARE DISEASE INC.-2024006594

PATIENT

DRUGS (1)
  1. NEOPROFEN [Suspect]
     Active Substance: IBUPROFEN LYSINE
     Indication: Patent ductus arteriosus
     Dosage: 10.00 MILLIGRAM/KILOGRAM
     Route: 042
     Dates: start: 20211112, end: 20211112

REACTIONS (3)
  - Bronchopulmonary dysplasia [Recovering/Resolving]
  - Gastritis [Recovered/Resolved]
  - Gastrooesophageal reflux disease [Recovered/Resolved]

NARRATIVE: CASE EVENT DATE: 20211114
